FAERS Safety Report 11823817 (Version 6)
Quarter: 2022Q1

REPORT INFORMATION
  Report Type: Spontaneous
  Country: FR (occurrence: FR)
  Receive Date: 20151210
  Receipt Date: 20220211
  Transmission Date: 20220423
  Serious: No
  Sender: FDA-Public Use
  Company Number: FR-BAUSCH-BL-2015-029105

PATIENT
  Age: 59 Year
  Sex: Male

DRUGS (10)
  1. BUDESONIDE [Suspect]
     Active Substance: BUDESONIDE
     Indication: Colitis microscopic
     Route: 065
  2. MESALAMINE [Suspect]
     Active Substance: MESALAMINE
     Indication: Colitis microscopic
     Route: 065
  3. LEUCOVORIN [Concomitant]
     Active Substance: LEUCOVORIN
     Indication: Colorectal cancer metastatic
     Dosage: 1 CYCLE
  4. LEUCOVORIN [Concomitant]
     Active Substance: LEUCOVORIN
     Dosage: 12 CYCLE
  5. FLUOROURACIL [Concomitant]
     Active Substance: FLUOROURACIL
     Indication: Colorectal cancer metastatic
     Dosage: 1 CYCLE
  6. FLUOROURACIL [Concomitant]
     Active Substance: FLUOROURACIL
     Dosage: 12 CYCLE
  7. IRINOTECAN [Concomitant]
     Active Substance: IRINOTECAN
     Indication: Colorectal cancer metastatic
     Dosage: 1 CYCLE
  8. IRINOTECAN [Concomitant]
     Active Substance: IRINOTECAN
     Dosage: 12 CYCLE
  9. AFLIBERCEPT [Concomitant]
     Active Substance: AFLIBERCEPT
     Indication: Colorectal cancer metastatic
     Dosage: 1 CYCLE
  10. AFLIBERCEPT [Concomitant]
     Active Substance: AFLIBERCEPT
     Dosage: 12 CYCLE

REACTIONS (1)
  - Diarrhoea [Unknown]
